FAERS Safety Report 9490608 (Version 2)
Quarter: 2013Q4

REPORT INFORMATION
  Report Type: Report from Study
  Country: CA (occurrence: CA)
  Receive Date: 20130830
  Receipt Date: 20131008
  Transmission Date: 20140711
  Serious: Yes (Hospitalization, Other)
  Sender: FDA-Public Use
  Company Number: PHHY2013CA094174

PATIENT
  Age: 63 Year
  Sex: Female

DRUGS (9)
  1. ACLASTA [Suspect]
     Indication: OSTEOPOROSIS
     Dosage: UNK UKN, UNK
     Route: 042
     Dates: start: 20080709
  2. ACLASTA [Suspect]
     Dosage: UNK UKN, UNK
     Route: 042
     Dates: start: 20090813
  3. ACLASTA [Suspect]
     Dosage: UNK UKN, UNK
     Route: 042
     Dates: start: 20100901
  4. ACLASTA [Suspect]
     Dosage: UNK UKN, UNK
     Route: 042
     Dates: start: 20110907
  5. ACLASTA [Suspect]
     Dosage: UNK UKN, UNK
     Route: 042
     Dates: start: 20120906
  6. DIURETICS [Concomitant]
     Dosage: UNK UKN, UNK
  7. ANALGESICS [Concomitant]
     Dosage: UNK UKN, UNK
  8. ACE INHIBITOR NOS [Concomitant]
     Dosage: UNK UKN, UNK
  9. ANGIOTENSIN II ANTAGONISTS [Concomitant]

REACTIONS (14)
  - Influenza [Recovered/Resolved]
  - Pneumonia [Recovered/Resolved]
  - Asthenia [Recovered/Resolved]
  - Pulmonary oedema [Recovered/Resolved]
  - Blood potassium decreased [Recovered/Resolved]
  - Renal failure [Recovered/Resolved]
  - Vomiting [Unknown]
  - Glomerular filtration rate decreased [Recovered/Resolved]
  - Lethargy [Unknown]
  - Pyrexia [Unknown]
  - Dehydration [Unknown]
  - Urine output decreased [Unknown]
  - Gastroenteritis [Recovered/Resolved]
  - Prerenal failure [Recovered/Resolved]
